FAERS Safety Report 6483438-0 (Version None)
Quarter: 2009Q4

REPORT INFORMATION
  Report Type: 
  Country: None (occurrence: None)
  Receive Date: 20091209
  Receipt Date: 20091130
  Transmission Date: 20100525
  Serious: Yes (Disabling, Other)
  Sender: FDA-Public Use
  Company Number: GB-PFIZER INC-2009204993

PATIENT
  Age: 23 Year
  Sex: Female

DRUGS (6)
  1. ZYVOX [Suspect]
     Indication: TUBERCULOSIS
     Dosage: 600 MG, 1X/DAY
     Route: 048
     Dates: start: 20081024
  2. CYCLOSERINE [Concomitant]
     Indication: TUBERCULOSIS
     Dosage: 500 MG, 2X/DAY
     Dates: start: 20081024
  3. PROTHIONAMIDE [Concomitant]
     Indication: TUBERCULOSIS
     Dosage: 500 MG, 2X/DAY
     Dates: start: 20081024, end: 20090514
  4. CLOFAZIMINE [Concomitant]
     Indication: TUBERCULOSIS
     Dosage: 300 MG, 1X/DAY
     Dates: start: 20081024
  5. AMIKACIN [Concomitant]
     Indication: TUBERCULOSIS
     Dosage: 1 G, 1X/DAY
     Dates: start: 20081024, end: 20090401
  6. CLARITHROMYCIN [Concomitant]
     Indication: TUBERCULOSIS
     Dosage: 500 MG, 2X/DAY

REACTIONS (7)
  - ANAEMIA [None]
  - DEAFNESS [None]
  - LEUKOPENIA [None]
  - NEUROPATHY PERIPHERAL [None]
  - NEUTROPENIA [None]
  - OTOTOXICITY [None]
  - WHITE BLOOD CELL COUNT INCREASED [None]
